FAERS Safety Report 26201177 (Version 2)
Quarter: 2025Q4

REPORT INFORMATION
  Report Type: Spontaneous
  Country: CN (occurrence: CN)
  Receive Date: 20251226
  Receipt Date: 20251231
  Transmission Date: 20260117
  Serious: Yes (Other)
  Sender: BRISTOL-MYERS SQUIBB COMPANY
  Company Number: CN-BRISTOL-MYERS SQUIBB COMPANY-2025-172664

PATIENT
  Age: 71 Year
  Sex: Male

DRUGS (6)
  1. OPDIVO [Suspect]
     Active Substance: NIVOLUMAB
     Indication: Lung neoplasm malignant
     Dosage: FREQ : USED ONCE AS A SINGLE DOSE?DRUG USE - TIMES: 1?DRUG USE - DAYS: 1
     Route: 041
     Dates: start: 20250724, end: 20250724
  2. PACLITAXEL [Suspect]
     Active Substance: PACLITAXEL
     Indication: Lung neoplasm malignant
     Dosage: DRUG USE - TIMES: 1?DRUG USE - DAYS: 1
     Route: 041
     Dates: start: 20250724, end: 20250724
  3. CARBOPLATIN [Suspect]
     Active Substance: CARBOPLATIN
     Indication: Lung neoplasm malignant
     Dosage: DRUG USE - TIMES: 1?DRUG USE - DAYS: 1
     Route: 041
     Dates: start: 20250724, end: 20250724
  4. DEXTROSE [Concomitant]
     Active Substance: DEXTROSE MONOHYDRATE
     Indication: Lung neoplasm malignant
     Dosage: DRUG USE - TIMES: 1?DRUG USE - DAYS: 1
     Route: 041
     Dates: start: 20250724, end: 20250724
  5. SODIUM CHLORIDE [Concomitant]
     Active Substance: SODIUM CHLORIDE
     Indication: Lung neoplasm malignant
     Dosage: DRUG USE - TIMES: 1?DRUG USE - DAYS: 1
     Route: 041
     Dates: start: 20250724, end: 20250724
  6. SODIUM CHLORIDE [Concomitant]
     Active Substance: SODIUM CHLORIDE
     Dosage: DRUG USE - TIMES: 1?DRUG USE - DAYS: 1
     Route: 041
     Dates: start: 20250724, end: 20250724

REACTIONS (2)
  - Leukopenia [Recovering/Resolving]
  - Neutropenia [Recovering/Resolving]

NARRATIVE: CASE EVENT DATE: 20250801
